FAERS Safety Report 8310481-9 (Version None)
Quarter: 2012Q2

REPORT INFORMATION
  Report Type: 
  Country: None (occurrence: None)
  Receive Date: 20120425
  Receipt Date: 20120420
  Transmission Date: 20120825
  Serious: Yes (Other)
  Sender: FDA-Public Use
  Company Number: US-JNJFOC-20120409843

PATIENT
  Sex: Female
  Weight: 59.88 kg

DRUGS (3)
  1. HEART MEDICATION (NOS) [Concomitant]
     Indication: CARDIAC DISORDER
     Route: 065
  2. LEVAQUIN [Suspect]
     Indication: CARDIAC PACEMAKER INSERTION
     Route: 048
     Dates: start: 20120406, end: 20120408
  3. VESICARE [Concomitant]
     Indication: BLADDER DISORDER
     Route: 048
     Dates: start: 20110101

REACTIONS (11)
  - HEART RATE DECREASED [None]
  - MALAISE [None]
  - ASTHENIA [None]
  - PAIN IN EXTREMITY [None]
  - TREATMENT NONCOMPLIANCE [None]
  - BLOOD PRESSURE FLUCTUATION [None]
  - EXTRASYSTOLES [None]
  - HYPOAESTHESIA [None]
  - TENDONITIS [None]
  - MUSCULOSKELETAL DISORDER [None]
  - DIZZINESS [None]
